FAERS Safety Report 5044734-7 (Version None)
Quarter: 2006Q2

REPORT INFORMATION
  Report Type: 
  Country: None (occurrence: None)
  Receive Date: 20060601
  Receipt Date: 20060221
  Transmission Date: 20061013
  Serious: No
  Sender: FDA-Public Use
  Company Number: 2006-BP-01958BP

PATIENT
  Age: 59 Year
  Sex: Female

DRUGS (9)
  1. SPIRIVA [Suspect]
     Indication: COUGH
     Dosage: 18 MCG (18 MCG, 1 IN 1 D), IH
     Route: 055
     Dates: start: 20060216
  2. ZESTRIL [Concomitant]
  3. HYDROCHLOROTHIAZIDE [Concomitant]
  4. ZEGNA POWDER [Concomitant]
  5. CENTRUM [Concomitant]
  6. ASCORBIC ACID [Concomitant]
  7. VITAMIN B-12 [Concomitant]
  8. VALIUM [Concomitant]
  9. ASPIRIN [Concomitant]

REACTIONS (2)
  - ARTHRALGIA [None]
  - DYSPNOEA [None]
